FAERS Safety Report 7390308-2 (Version None)
Quarter: 2011Q2

REPORT INFORMATION
  Report Type: 
  Country: None (occurrence: None)
  Receive Date: 20110401
  Receipt Date: 20110324
  Transmission Date: 20111010
  Serious: Yes (Life-Threatening, Hospitalization)
  Sender: FDA-Public Use
  Company Number: JP-B.I. PHARMACEUTICALS,INC./RIDGEFIELD-2011-DE-00748GD

PATIENT
  Sex: Male
  Weight: 51 kg

DRUGS (1)
  1. MOBIC [Suspect]
     Indication: RHEUMATOID ARTHRITIS
     Dosage: 1DF
     Route: 048
     Dates: end: 20090501

REACTIONS (4)
  - ILEAL STENOSIS [None]
  - DYSPNOEA EXERTIONAL [None]
  - ANAEMIA [None]
  - FAECES DISCOLOURED [None]
